FAERS Safety Report 23327773 (Version 1)
Quarter: 2023Q4

REPORT INFORMATION
  Report Type: Spontaneous
  Country: US (occurrence: US)
  Receive Date: 20231221
  Receipt Date: 20231221
  Transmission Date: 20240110
  Serious: No
  Sender: FDA-Public Use
  Company Number: US-FMCRTG-FMC-2312-001429

PATIENT
  Sex: Female

DRUGS (1)
  1. DELFLEX WITH DEXTROSE 2.5% LOW MAGNESIUM LOW CALCIUM [Suspect]
     Active Substance: CALCIUM CHLORIDE\DEXTROSE\MAGNESIUM CHLORIDE\SODIUM CHLORIDE\SODIUM LACTATE
     Indication: End stage renal disease
     Dosage: FILLS = 5; FIRST FILL VOLUME = 2250ML; TIDAL FILL VOLUME = 1700ML; TIDAL DRAIN VOLUME = 1900ML; LAST
     Route: 033

REACTIONS (1)
  - Pain [Unknown]

NARRATIVE: CASE EVENT DATE: 20231205
